FAERS Safety Report 10158340 (Version 1)
Quarter: 2014Q2

REPORT INFORMATION
  Report Type: Spontaneous
  Country: ES (occurrence: ES)
  Receive Date: 20140507
  Receipt Date: 20140507
  Transmission Date: 20141212
  Serious: Yes (Other)
  Sender: FDA-Public Use
  Company Number: ES-009507513-1404ESP014809

PATIENT
  Age: 54 Year
  Sex: Female
  Weight: 67 kg

DRUGS (4)
  1. FOSAVANCE [Suspect]
     Indication: SPINAL COMPRESSION FRACTURE
     Dosage: 1 DF, QW
     Route: 048
     Dates: start: 20100810, end: 20140324
  2. MASTICAL [Concomitant]
     Indication: SPINAL COMPRESSION FRACTURE
     Dosage: 500 MG, QD
     Route: 048
     Dates: start: 20140124
  3. IBUPROFEN [Concomitant]
     Indication: BACK PAIN
     Dosage: 600 MG, BID, 600MG/12H
     Route: 048
     Dates: start: 20140303
  4. DIPYRONE [Concomitant]
     Indication: BACK PAIN
     Dosage: 1 / 8 HOURS
     Route: 048
     Dates: start: 20140303

REACTIONS (1)
  - Sternal fracture [Not Recovered/Not Resolved]
